FAERS Safety Report 16406563 (Version 1)
Quarter: 2019Q2

REPORT INFORMATION
  Report Type: Spontaneous
  Country: IN (occurrence: IN)
  Receive Date: 20190607
  Receipt Date: 20190607
  Transmission Date: 20190711
  Serious: Yes (Hospitalization, Other)
  Sender: FDA-Public Use
  Company Number: IN-AKORN PHARMACEUTICALS-2019AKN01198

PATIENT
  Age: 25 Year
  Sex: Female

DRUGS (1)
  1. RIFAMPICIN/ISONIAZID [Suspect]
     Active Substance: ISONIAZID\RIFAMPIN
     Dosage: RIFAMPICIN 600/ISONIAZID 300 (12 TABLETS)
     Route: 048

REACTIONS (7)
  - Generalised tonic-clonic seizure [Recovered/Resolved]
  - Loss of consciousness [Recovered/Resolved]
  - Drug-induced liver injury [Recovered/Resolved]
  - Pneumonia aspiration [Recovered/Resolved]
  - Toxicity to various agents [Recovered/Resolved]
  - Metabolic acidosis [Recovered/Resolved]
  - Suicide attempt [Recovered/Resolved]
